FAERS Safety Report 4647855-3 (Version None)
Quarter: 2005Q2

REPORT INFORMATION
  Report Type: 
  Country: None (occurrence: None)
  Receive Date: 20050428
  Receipt Date: 20050422
  Transmission Date: 20051028
  Serious: Yes (Hospitalization)
  Sender: FDA-Public Use
  Company Number: FR-GLAXOSMITHKLINE-B0379286A

PATIENT
  Age: 69 Year
  Sex: Male

DRUGS (15)
  1. AUGMENTIN '125' [Suspect]
     Dosage: 1G THREE TIMES PER DAY
     Route: 042
     Dates: start: 20050308, end: 20050311
  2. ACUPAN [Concomitant]
     Route: 042
     Dates: start: 20050308, end: 20050310
  3. BRICANYL [Concomitant]
     Route: 055
     Dates: start: 20050309, end: 20050310
  4. STAGID [Concomitant]
     Route: 048
  5. ATROVENT [Concomitant]
     Route: 055
     Dates: start: 20050309, end: 20050310
  6. IMMUNE GLOBULIN INTRAVENOUS (HUMAN) [Concomitant]
     Route: 030
     Dates: start: 20050310, end: 20050310
  7. MORPHINE [Concomitant]
     Route: 065
     Dates: start: 20050309, end: 20050310
  8. PERFALGAN [Concomitant]
     Route: 042
     Dates: start: 20050308, end: 20050310
  9. SECTRAL [Concomitant]
     Route: 065
  10. MIDAZOLAM HCL [Concomitant]
     Route: 065
     Dates: start: 20050309
  11. PRIMPERAN TAB [Concomitant]
     Route: 065
     Dates: start: 20050309
  12. NICARDIPINE HCL [Concomitant]
     Route: 065
     Dates: start: 20050309
  13. LOVENOX [Concomitant]
     Route: 042
     Dates: start: 20050310, end: 20050310
  14. NEXIUM [Concomitant]
     Indication: PROPHYLAXIS
     Route: 065
     Dates: start: 20050310
  15. FENTANYL [Concomitant]
     Route: 065
     Dates: start: 20050310

REACTIONS (3)
  - AGRANULOCYTOSIS [None]
  - LUNG INFECTION [None]
  - SEPSIS [None]
